FAERS Safety Report 9605677 (Version 1)
Quarter: 2013Q4

REPORT INFORMATION
  Report Type: Spontaneous
  Country: BR (occurrence: BR)
  Receive Date: 20131008
  Receipt Date: 20131008
  Transmission Date: 20140711
  Serious: Yes (Other)
  Sender: FDA-Public Use
  Company Number: BR-B.I. PHARMACEUTICALS,INC./RIDGEFIELD-2013-BI-31209BR

PATIENT
  Age: 85 Year
  Sex: Male

DRUGS (4)
  1. SECOTEX [Suspect]
     Indication: SUICIDE ATTEMPT
     Route: 048
     Dates: start: 20131002
  2. ESCITALOPRAM [Suspect]
     Indication: SUICIDE ATTEMPT
     Dosage: 240 MG
     Route: 048
     Dates: start: 20131002
  3. OXIBUTININA HYDROCHLORIDE [Suspect]
     Indication: SUICIDE ATTEMPT
     Route: 048
     Dates: start: 20131002
  4. VALSATANA [Suspect]
     Indication: SUICIDE ATTEMPT
     Dates: start: 20131002

REACTIONS (2)
  - Suicide attempt [Unknown]
  - Sialocele [Unknown]
